FAERS Safety Report 6410205-6 (Version None)
Quarter: 2009Q4

REPORT INFORMATION
  Report Type: 
  Country: None (occurrence: None)
  Receive Date: 20091022
  Receipt Date: 20091008
  Transmission Date: 20100525
  Serious: Yes (Hospitalization, Other)
  Sender: FDA-Public Use
  Company Number: PHHY2009CL43807

PATIENT
  Age: 85 Year
  Sex: Female

DRUGS (3)
  1. TAREG D [Suspect]
     Indication: HYPERTENSION
     Dosage: ONE TABLET  (160/12.5 MG)PER DAY
  2. ATORVASTATIN [Concomitant]
  3. ENALAPRIL MALEATE [Concomitant]
     Dosage: UNK

REACTIONS (3)
  - CEREBROVASCULAR ACCIDENT [None]
  - HEMIPLEGIA [None]
  - TREATMENT NONCOMPLIANCE [None]
